FAERS Safety Report 17192507 (Version 2)
Quarter: 2019Q4

REPORT INFORMATION
  Report Type: Spontaneous
  Country: GB (occurrence: GB)
  Receive Date: 20191223
  Receipt Date: 20191230
  Transmission Date: 20200122
  Serious: Yes (Other)
  Sender: FDA-Public Use
  Company Number: GB-009507513-1911GBR009540

PATIENT
  Age: 23 Year
  Sex: Female

DRUGS (2)
  1. CERELLE [Suspect]
     Active Substance: DESOGESTREL
     Dosage: UNK
     Route: 048
     Dates: start: 201909, end: 2019
  2. NEXPLANON [Suspect]
     Active Substance: ETONOGESTREL
     Indication: CONTRACEPTION
     Dosage: 1 IMPLANT. FREQUENCY REPORTED AS: 1
     Dates: start: 20190305

REACTIONS (10)
  - Menstruation normal [Unknown]
  - Device expulsion [Unknown]
  - Amenorrhoea [Recovered/Resolved]
  - Device related infection [Recovered/Resolved]
  - Implant site scar [Unknown]
  - Adverse reaction [Unknown]
  - Device deployment issue [Unknown]
  - Implant site pain [Unknown]
  - Complication associated with device [Not Recovered/Not Resolved]
  - Implant site swelling [Unknown]

NARRATIVE: CASE EVENT DATE: 2019
